APPROVED DRUG PRODUCT: DEXBROMPHENIRAMINE MALEATE AND PSEUDOEPHEDRINE SULFATE
Active Ingredient: DEXBROMPHENIRAMINE MALEATE; PSEUDOEPHEDRINE SULFATE
Strength: 6MG;120MG
Dosage Form/Route: TABLET, EXTENDED RELEASE;ORAL
Application: A078648 | Product #001
Applicant: AVANTHI INC
Approved: Feb 27, 2013 | RLD: No | RS: No | Type: DISCN